FAERS Safety Report 5634518-0 (Version None)
Quarter: 2008Q1

REPORT INFORMATION
  Report Type: 
  Country: None (occurrence: None)
  Receive Date: 20080222
  Receipt Date: 20080214
  Transmission Date: 20080703
  Serious: Yes (Other)
  Sender: FDA-Public Use
  Company Number: US-ASTRAZENECA-2008UW03134

PATIENT
  Age: 63 Year
  Sex: Female
  Weight: 81.6 kg

DRUGS (9)
  1. TOPROL-XL [Suspect]
     Route: 048
  2. ISOSORBIDE DINITRATE [Concomitant]
  3. FUROSEMIDE [Concomitant]
  4. SPIRONOLACTONE [Concomitant]
  5. MAGOXIDE [Concomitant]
  6. DIGOXIN [Concomitant]
  7. ZOCOR [Concomitant]
  8. COUMADIN [Concomitant]
  9. OGEN [Concomitant]

REACTIONS (1)
  - ASCITES [None]
